FAERS Safety Report 24549163 (Version 1)
Quarter: 2024Q4

REPORT INFORMATION
  Report Type: Spontaneous
  Country: TN (occurrence: TN)
  Receive Date: 20241025
  Receipt Date: 20241025
  Transmission Date: 20250114
  Serious: Yes (Hospitalization, Other)
  Sender: UCB
  Company Number: TN-UCBSA-2024054332

PATIENT
  Age: 77 Year
  Sex: Female
  Weight: 110 kg

DRUGS (7)
  1. CERTOLIZUMAB PEGOL [Suspect]
     Active Substance: CERTOLIZUMAB PEGOL
     Indication: Rheumatoid arthritis
     Dosage: 200 MILLIGRAM, EV 15 DAYS
     Dates: start: 20180110, end: 20240916
  2. LOPRIL [CAPTOPRIL] [Concomitant]
     Indication: Rheumatoid arthritis
     Dosage: 1 TABLET, 3X/DAY (TID)
     Dates: end: 20241016
  3. LOPRIL [CAPTOPRIL] [Concomitant]
     Indication: Hypertension
  4. HYPOTEN [ATENOLOL] [Concomitant]
     Indication: Rheumatoid arthritis
     Dosage: 1 TABLET, ONCE DAILY (QD)
     Dates: end: 20241016
  5. HYPOTEN [ATENOLOL] [Concomitant]
     Indication: Hypertension
  6. METHOTREXATE [Concomitant]
     Active Substance: METHOTREXATE
     Indication: Rheumatoid arthritis
     Dosage: 3 TABLETS, WEEKLY (QW)
     Dates: end: 20241016
  7. METHOTREXATE [Concomitant]
     Active Substance: METHOTREXATE
     Indication: Hypertension

REACTIONS (2)
  - Pancreatitis [Recovered/Resolved]
  - Rheumatoid arthritis [Unknown]

NARRATIVE: CASE EVENT DATE: 20240915
